FAERS Safety Report 5856836-3 (Version None)
Quarter: 2008Q3

REPORT INFORMATION
  Report Type: 
  Country: None (occurrence: None)
  Receive Date: 20080825
  Receipt Date: 20080731
  Transmission Date: 20090109
  Serious: Yes (Death, Other)
  Sender: FDA-Public Use
  Company Number: PHHO2008US10022

PATIENT
  Sex: Female

DRUGS (4)
  1. GLEEVEC [Suspect]
     Indication: ACUTE MYELOID LEUKAEMIA
     Dosage: 800 MG, QD
  2. CLADRIBINE [Concomitant]
     Indication: ACUTE MYELOID LEUKAEMIA
  3. CYTARABINE [Concomitant]
     Indication: ACUTE MYELOID LEUKAEMIA
  4. NEUPOGEN [Concomitant]
     Indication: ACUTE MYELOID LEUKAEMIA

REACTIONS (4)
  - CARDIAC FAILURE CONGESTIVE [None]
  - EJECTION FRACTION DECREASED [None]
  - NEUTROPENIA [None]
  - SEPSIS [None]
